FAERS Safety Report 19596831 (Version 1)
Quarter: 2021Q3

REPORT INFORMATION
  Report Type: Spontaneous
  Country: US (occurrence: US)
  Receive Date: 20210722
  Receipt Date: 20210722
  Transmission Date: 20211014
  Serious: Yes (Death, Other)
  Sender: FDA-Public Use
  Company Number: NVSC2021US165804

PATIENT
  Sex: Male

DRUGS (1)
  1. TASIGNA [Suspect]
     Active Substance: NILOTINIB
     Indication: CHRONIC MYELOID LEUKAEMIA
     Dosage: UNK
     Route: 048
     Dates: start: 201201, end: 201712

REACTIONS (8)
  - Arteriosclerosis [Unknown]
  - Death [Fatal]
  - Pain [Unknown]
  - Injury [Unknown]
  - Emotional distress [Unknown]
  - Peripheral arterial occlusive disease [Unknown]
  - Skin ulcer [Unknown]
  - Anxiety [Unknown]

NARRATIVE: CASE EVENT DATE: 20180609
